FAERS Safety Report 6341143-5 (Version None)
Quarter: 2009Q3

REPORT INFORMATION
  Report Type: 
  Country: None (occurrence: None)
  Receive Date: 20090904
  Receipt Date: 20090212
  Transmission Date: 20100115
  Serious: No
  Sender: FDA-Public Use
  Company Number: A0768476A

PATIENT

DRUGS (1)
  1. REQUIP XL [Suspect]
     Route: 048

REACTIONS (2)
  - ERYTHEMA [None]
  - OEDEMA PERIPHERAL [None]
